FAERS Safety Report 12007973 (Version 1)
Quarter: 2016Q1

REPORT INFORMATION
  Report Type: Report from Study
  Country: US (occurrence: US)
  Receive Date: 20160205
  Receipt Date: 20160205
  Transmission Date: 20160526
  Serious: Yes (Other)
  Sender: FDA-Public Use
  Company Number: US-ROCHE-1705916

PATIENT
  Age: 37 Year
  Sex: Female
  Weight: 65.3 kg

DRUGS (1)
  1. TRASTUZUMAB [Suspect]
     Active Substance: TRASTUZUMAB
     Indication: HER-2 POSITIVE BREAST CANCER
     Dosage: SINGLE DOSE, CYCLE 1,  80MG/IT/TW
     Route: 065
     Dates: start: 20151103

REACTIONS (1)
  - Meningitis chemical [Recovered/Resolved]

NARRATIVE: CASE EVENT DATE: 20151104
